FAERS Safety Report 13925575 (Version 1)
Quarter: 2017Q3

REPORT INFORMATION
  Report Type: Spontaneous
  Country: US (occurrence: US)
  Receive Date: 20170831
  Receipt Date: 20170831
  Transmission Date: 20171127
  Serious: No
  Sender: FDA-Public Use
  Company Number: US-SA-2017SA150314

PATIENT
  Age: 36 Year
  Sex: Female

DRUGS (9)
  1. PLAQUENIL [Concomitant]
     Active Substance: HYDROXYCHLOROQUINE SULFATE
     Route: 065
  2. SOLIQUA 100/33 [Suspect]
     Active Substance: INSULIN GLARGINE\LIXISENATIDE
     Route: 065
     Dates: start: 201705
  3. PREDNISONE. [Concomitant]
     Active Substance: PREDNISONE
     Route: 065
  4. MELOXICAM. [Concomitant]
     Active Substance: MELOXICAM
     Route: 065
  5. SOLIQUA 100/33 [Suspect]
     Active Substance: INSULIN GLARGINE\LIXISENATIDE
     Dosage: DOSE:60 UNIT(S)
     Route: 065
     Dates: start: 2017
  6. SOLOSTAR [Suspect]
     Active Substance: DEVICE
     Dates: start: 201705
  7. SOLOSTAR [Suspect]
     Active Substance: DEVICE
     Dates: start: 2017
  8. METFORMIN [Concomitant]
     Active Substance: METFORMIN HYDROCHLORIDE
     Route: 065
  9. PROTONIX [Concomitant]
     Active Substance: PANTOPRAZOLE SODIUM
     Route: 065

REACTIONS (1)
  - Blood glucose increased [Not Recovered/Not Resolved]

NARRATIVE: CASE EVENT DATE: 20170810
